FAERS Safety Report 12340876 (Version 1)
Quarter: 2016Q2

REPORT INFORMATION
  Report Type: Spontaneous
  Country: US (occurrence: US)
  Receive Date: 20160506
  Receipt Date: 20160506
  Transmission Date: 20160815
  Serious: No
  Sender: FDA-Public Use
  Company Number: US-PFIZER INC-2016203826

PATIENT
  Age: 88 Year
  Sex: Female

DRUGS (14)
  1. ACETAMINOPHEN. [Concomitant]
     Active Substance: ACETAMINOPHEN
     Indication: PAIN
  2. AMLODIPINE [Concomitant]
     Active Substance: AMLODIPINE BESYLATE
     Indication: HYPERTENSION
     Dosage: UNK
  3. LOMOTIL [Concomitant]
     Active Substance: ATROPINE SULFATE\DIPHENOXYLATE HYDROCHLORIDE
     Dosage: (DIPHENOXYLATE: 2.5 MG / ATROPINE: 0.025 MG)/ 5 ML LIQUID AS NEEDED
     Route: 048
  4. PROZAC [Concomitant]
     Active Substance: FLUOXETINE HYDROCHLORIDE
     Dosage: 10 MG, EVERY MORNING
     Route: 048
  5. MELATONIN [Concomitant]
     Active Substance: MELATONIN
     Dosage: UNK
     Route: 048
  6. LYRICA [Suspect]
     Active Substance: PREGABALIN
     Indication: NEUROPATHY PERIPHERAL
     Dosage: 100 MG, 2X/DAY
     Route: 048
  7. LYRICA [Suspect]
     Active Substance: PREGABALIN
     Dosage: 150 MG, 2X/DAY
     Route: 048
     Dates: start: 20160406
  8. APRESOLINE HYDROCHLORIDE [Concomitant]
     Active Substance: HYDRALAZINE HYDROCHLORIDE
     Dosage: 10 MG, 2X/DAY
     Route: 048
  9. DIPROLENE [Concomitant]
     Active Substance: BETAMETHASONE DIPROPIONATE
     Dosage: UNK UNK, AS NEEDED
     Route: 061
  10. TYLENOL [Concomitant]
     Active Substance: ACETAMINOPHEN
     Dosage: 1000 MG, 3X/DAY
  11. LYRICA [Suspect]
     Active Substance: PREGABALIN
     Indication: NEURALGIA
     Dosage: 150 MG, 2X/DAY
     Route: 048
     Dates: start: 20160303
  12. LOTENSIN [Concomitant]
     Active Substance: BENAZEPRIL HYDROCHLORIDE
     Dosage: 10 MG, 2X/DAY
     Route: 048
  13. MYCOSTATIN [Concomitant]
     Active Substance: NYSTATIN
     Dosage: UNK UNK, AAA BID
     Route: 061
  14. ACETAMINOPHEN. [Concomitant]
     Active Substance: ACETAMINOPHEN
     Indication: PYREXIA
     Dosage: 1000 MG UP TO 3X DAILY AS NEEDED
     Route: 048
     Dates: start: 20150105

REACTIONS (15)
  - Arthralgia [Unknown]
  - Weight decreased [Unknown]
  - Dyspnoea [Unknown]
  - Disturbance in attention [Unknown]
  - Neuralgia [Unknown]
  - Swelling [Unknown]
  - Fatigue [Unknown]
  - Visual impairment [Unknown]
  - Myalgia [Unknown]
  - Gait disturbance [Unknown]
  - Condition aggravated [Unknown]
  - Neuropathy peripheral [Unknown]
  - Oedema [Unknown]
  - Pain [Unknown]
  - Sleep disorder [Unknown]
